FAERS Safety Report 6443236-0 (Version None)
Quarter: 2009Q4

REPORT INFORMATION
  Report Type: 
  Country: None (occurrence: None)
  Receive Date: 20091117
  Receipt Date: 20091109
  Transmission Date: 20100525
  Serious: Yes (Other)
  Sender: FDA-Public Use
  Company Number: US-GENENTECH-293936

PATIENT
  Sex: Male
  Weight: 43.1 kg

DRUGS (1)
  1. SOMATROPIN [Suspect]
     Indication: GROWTH HORMONE DEFICIENCY
     Dosage: 2.8 MG, 6/WEEK
     Route: 058
     Dates: start: 20070228

REACTIONS (1)
  - ULNA FRACTURE [None]
